FAERS Safety Report 5654504-4 (Version None)
Quarter: 2008Q1

REPORT INFORMATION
  Report Type: 
  Country: None (occurrence: None)
  Receive Date: 20080307
  Receipt Date: 20080225
  Transmission Date: 20080703
  Serious: Yes (Other)
  Sender: FDA-Public Use
  Company Number: US-BAYER-US-2005-017294

PATIENT
  Age: 48 Year
  Sex: Female
  Weight: 63 kg

DRUGS (11)
  1. CLIMARA [Suspect]
     Indication: HORMONE REPLACEMENT THERAPY
     Route: 062
     Dates: start: 19970101, end: 19970101
  2. PREMARIN [Suspect]
     Indication: HORMONE REPLACEMENT THERAPY
     Dates: start: 19930101, end: 19970101
  3. PREMPRO [Suspect]
     Indication: HORMONE REPLACEMENT THERAPY
     Dates: start: 19980101, end: 19990101
  4. MPA [Suspect]
     Indication: HORMONE REPLACEMENT THERAPY
     Dates: start: 19970101, end: 19980101
  5. PROVERA [Suspect]
     Indication: HORMONE REPLACEMENT THERAPY
     Dates: start: 19930101, end: 19970101
  6. IBUPROFEN [Concomitant]
     Indication: HEADACHE
  7. TYLENOL (CAPLET) [Concomitant]
  8. PREVACID [Concomitant]
     Indication: GASTROOESOPHAGEAL REFLUX DISEASE
  9. LIPITOR [Concomitant]
     Dates: start: 20011002
  10. NORVASC [Concomitant]
     Dates: start: 20010202
  11. VIOXX [Concomitant]
     Dates: start: 20000101

REACTIONS (8)
  - BREAST CANCER FEMALE [None]
  - DEPRESSION [None]
  - EMOTIONAL DISTRESS [None]
  - EYE DISORDER [None]
  - LIMB DISCOMFORT [None]
  - PROCEDURAL PAIN [None]
  - THYROID CYST [None]
  - THYROID DISORDER [None]
